FAERS Safety Report 24581811 (Version 1)
Quarter: 2024Q4

REPORT INFORMATION
  Report Type: Spontaneous
  Country: JP (occurrence: JP)
  Receive Date: 20241105
  Receipt Date: 20241105
  Transmission Date: 20250114
  Serious: Yes (Other)
  Sender: TAIHO ONCOLOGY INC
  Company Number: JP-TAIHOP-2024-009614

PATIENT
  Age: 74 Year
  Sex: Male

DRUGS (7)
  1. LONSURF [Suspect]
     Active Substance: TIPIRACIL HYDROCHLORIDE\TRIFLURIDINE
     Indication: Colon cancer
     Dosage: DOSE. FREQUENCY, AND CYCLE UNKNOWN.
     Route: 048
  2. EDOXABAN [Concomitant]
     Active Substance: EDOXABAN
     Indication: Product used for unknown indication
  3. SITAGLIPTIN [Concomitant]
     Active Substance: SITAGLIPTIN
     Indication: Product used for unknown indication
  4. LEVOTHYROXINE [Concomitant]
     Active Substance: LEVOTHYROXINE
     Indication: Product used for unknown indication
     Dosage: 50
  5. PEMAFIBRATE [Concomitant]
     Active Substance: PEMAFIBRATE
     Indication: Product used for unknown indication
  6. BROTIZOLAM [Concomitant]
     Active Substance: BROTIZOLAM
     Indication: Product used for unknown indication
  7. FUROSEMIDE [Concomitant]
     Active Substance: FUROSEMIDE
     Indication: Product used for unknown indication

REACTIONS (1)
  - Thrombotic microangiopathy [Recovering/Resolving]
